FAERS Safety Report 23213208 (Version 1)
Quarter: 2023Q4

REPORT INFORMATION
  Report Type: Spontaneous
  Country: FR (occurrence: FR)
  Receive Date: 20231121
  Receipt Date: 20231121
  Transmission Date: 20240110
  Serious: Yes (Hospitalization)
  Sender: FDA-Public Use
  Company Number: FR-AFSSAPS-LY2023001224

PATIENT
  Age: 24 Year
  Sex: Female
  Weight: 62 kg

DRUGS (3)
  1. PANTOPRAZOLE [Suspect]
     Active Substance: PANTOPRAZOLE
     Indication: Product used for unknown indication
     Dosage: 20 MILLIGRAM, DAILY, 10 MG PER DAY THEN 20 MG PER DAY
     Route: 048
     Dates: start: 20230627
  2. LAMOTRIGINE [Suspect]
     Active Substance: LAMOTRIGINE
     Indication: Depression
     Dosage: 200 MILLIGRAM, DAILY
     Route: 048
     Dates: start: 20230515, end: 20230715
  3. CYAMEMAZINE [Concomitant]
     Active Substance: CYAMEMAZINE
     Indication: Product used for unknown indication
     Dosage: UNK
     Route: 065

REACTIONS (1)
  - SJS-TEN overlap [Recovering/Resolving]

NARRATIVE: CASE EVENT DATE: 20230712
